FAERS Safety Report 11819518 (Version 1)
Quarter: 2015Q4

REPORT INFORMATION
  Report Type: Spontaneous
  Country: US (occurrence: None)
  Receive Date: 20151209
  Receipt Date: 20151209
  Transmission Date: 20160305
  Serious: No
  Sender: FDA-Public Use
  Company Number: None

PATIENT
  Age: 76 Year
  Sex: Female
  Weight: 59.88 kg

DRUGS (5)
  1. ATORVASTATIN [Concomitant]
     Active Substance: ATORVASTATIN
  2. BABY ASPRIN [Concomitant]
     Active Substance: ASPIRIN
  3. ^OVER 50^ MULTIVITAMIN [Concomitant]
  4. VITAMIN D3 [Concomitant]
     Active Substance: CHOLECALCIFEROL
  5. SUPREP BOWEL PREP [Suspect]
     Active Substance: MAGNESIUM SULFATE\POTASSIUM SULFATE\SODIUM SULFATE
     Indication: COLONOSCOPY
     Dosage: 17.5G/3.13G/1.6G PER 6 OZ, 2 6 OZ DOSES, ONE DOSE BEDTIME ONE DOSE NEXT AM BY MOUTH
     Route: 048
     Dates: start: 20151103, end: 20151104

REACTIONS (3)
  - Retching [None]
  - Vomiting [None]
  - Mallory-Weiss syndrome [None]

NARRATIVE: CASE EVENT DATE: 20151104
